FAERS Safety Report 6814034-0 (Version None)
Quarter: 2010Q3

REPORT INFORMATION
  Report Type: 
  Country: None (occurrence: None)
  Receive Date: 20100702
  Receipt Date: 20100622
  Transmission Date: 20110219
  Serious: Yes (Hospitalization)
  Sender: FDA-Public Use
  Company Number: PHHY2010JP25669

PATIENT
  Age: 24 Year
  Sex: Male

DRUGS (4)
  1. TEGRETOL [Suspect]
     Indication: EPILEPSY
     Dosage: 400 MG, UNK
     Route: 048
  2. TEGRETOL [Suspect]
     Dosage: 500 MG, UNK
     Route: 048
  3. VALPROATE SODIUM [Concomitant]
     Indication: EPILEPSY
     Dosage: UNK, UNK
     Route: 048
  4. CLOBAZAM [Concomitant]
     Indication: EPILEPSY
     Dosage: UNK, UNK
     Route: 048

REACTIONS (14)
  - ALTERED STATE OF CONSCIOUSNESS [None]
  - CONGENITAL CENTRAL NERVOUS SYSTEM ANOMALY [None]
  - DEHYDRATION [None]
  - GAIT DISTURBANCE [None]
  - HYPOGONADISM [None]
  - HYPONATRAEMIA [None]
  - HYPOREFLEXIA [None]
  - INAPPROPRIATE ANTIDIURETIC HORMONE SECRETION [None]
  - OPTIC NERVE DISORDER [None]
  - PYREXIA [None]
  - SECONDARY SEXUAL CHARACTERISTICS ABSENCE [None]
  - SEPTO-OPTIC DYSPLASIA [None]
  - TREMOR [None]
  - VOMITING [None]
